FAERS Safety Report 4928820-5 (Version None)
Quarter: 2006Q1

REPORT INFORMATION
  Report Type: 
  Country: None (occurrence: None)
  Receive Date: 20060228
  Receipt Date: 20060228
  Transmission Date: 20060701
  Serious: No
  Sender: FDA-Public Use
  Company Number: None

PATIENT
  Age: 52 Year
  Sex: Male

DRUGS (6)
  1. FENTANYL [Suspect]
     Indication: PAIN
     Dosage: APPLY 1 PATCH EVERY 48 HOURS
     Dates: start: 20050101
  2. SOMA [Concomitant]
  3. ALTACE [Concomitant]
  4. TRICOR [Concomitant]
  5. FOLTX [Concomitant]
  6. PROTONIX [Concomitant]

REACTIONS (7)
  - ADVERSE DRUG REACTION [None]
  - DEHYDRATION [None]
  - INCORRECT DOSE ADMINISTERED [None]
  - LOSS OF CONSCIOUSNESS [None]
  - LOSS OF CONTROL OF LEGS [None]
  - PHARMACEUTICAL PRODUCT COMPLAINT [None]
  - PNEUMONIA [None]
